FAERS Safety Report 18989845 (Version 1)
Quarter: 2021Q1

REPORT INFORMATION
  Report Type: Spontaneous
  Country: CA (occurrence: CA)
  Receive Date: 20210309
  Receipt Date: 20210309
  Transmission Date: 20210420
  Serious: Yes (Hospitalization, Other)
  Sender: FDA-Public Use
  Company Number: CA-ABBVIE-21K-028-3804736-00

PATIENT
  Age: 50 Year
  Sex: Male

DRUGS (4)
  1. CIPROFLOXACIN. [Suspect]
     Active Substance: CIPROFLOXACIN
     Indication: ABSCESS
     Route: 048
  2. HUMIRA [Suspect]
     Active Substance: ADALIMUMAB
     Indication: COLITIS ULCERATIVE
     Route: 058
  3. FLAGYL [Suspect]
     Active Substance: METRONIDAZOLE\METRONIDAZOLE HYDROCHLORIDE
     Indication: ABSCESS
     Route: 048
  4. TYLENOL EXTRA STRENGTH [Concomitant]
     Active Substance: ACETAMINOPHEN
     Indication: PRODUCT USED FOR UNKNOWN INDICATION

REACTIONS (13)
  - Frequent bowel movements [Not Recovered/Not Resolved]
  - Pyrexia [Not Recovered/Not Resolved]
  - Faeces discoloured [Not Recovered/Not Resolved]
  - Diarrhoea [Not Recovered/Not Resolved]
  - Intestinal obstruction [Not Recovered/Not Resolved]
  - Incision site complication [Not Recovered/Not Resolved]
  - Inflammation [Not Recovered/Not Resolved]
  - Abscess [Not Recovered/Not Resolved]
  - Fatigue [Not Recovered/Not Resolved]
  - Incision site pain [Not Recovered/Not Resolved]
  - Malaise [Not Recovered/Not Resolved]
  - Rectal abscess [Not Recovered/Not Resolved]
  - Arthropathy [Not Recovered/Not Resolved]
